FAERS Safety Report 8819522 (Version 5)
Quarter: 2013Q1

REPORT INFORMATION
  Report Type: Spontaneous
  Country: US (occurrence: US)
  Receive Date: 20120930
  Receipt Date: 20130227
  Transmission Date: 20140127
  Serious: No
  Sender: FDA-Public Use
  Company Number: US-009507513-1209USA012023

PATIENT
  Sex: Male

DRUGS (3)
  1. PEGINTRON [Suspect]
     Indication: HEPATITIS C
     Dosage: UNK
     Dates: start: 20120913, end: 20130110
  2. RIBAVIRIN [Suspect]
     Indication: HEPATITIS C
     Dosage: UNK
     Dates: start: 20120913, end: 20130110
  3. VICTRELIS [Suspect]
     Indication: HEPATITIS C
     Dosage: UNK
     Dates: start: 20121012, end: 20130110

REACTIONS (32)
  - Anaemia [Unknown]
  - Abasia [Unknown]
  - Gastroenteritis viral [Unknown]
  - Sleep disorder due to general medical condition, insomnia type [Unknown]
  - Psychomotor hyperactivity [Unknown]
  - Feeling abnormal [Unknown]
  - Dry mouth [Unknown]
  - Vomiting [Unknown]
  - Insomnia [Unknown]
  - Diarrhoea [Unknown]
  - Pyrexia [Unknown]
  - Malaise [Unknown]
  - Abdominal discomfort [Unknown]
  - Adverse event [Unknown]
  - Thirst [Unknown]
  - Rash [Unknown]
  - Pruritus [Unknown]
  - Influenza [Unknown]
  - Dry skin [Unknown]
  - Anaemia [Unknown]
  - Insomnia [Unknown]
  - Malaise [Unknown]
  - Drug ineffective [Unknown]
  - Anaemia [Unknown]
  - Insomnia [Unknown]
  - Pruritus [Unknown]
  - Dry skin [Unknown]
  - Heart rate increased [Unknown]
  - Eyelid oedema [Unknown]
  - Skin disorder [Unknown]
  - Eye disorder [Unknown]
  - Laceration [Unknown]
